FAERS Safety Report 10330803 (Version 1)
Quarter: 2014Q3

REPORT INFORMATION
  Report Type: Spontaneous
  Country: US (occurrence: None)
  Receive Date: 20140718
  Receipt Date: 20140718
  Transmission Date: 20150326
  Serious: Yes (Life-Threatening, Hospitalization)
  Sender: FDA-Public Use
  Company Number: None

PATIENT
  Age: 43 Year
  Sex: Female
  Weight: 87.09 kg

DRUGS (1)
  1. LISINOPRIL. [Suspect]
     Active Substance: LISINOPRIL
     Indication: HYPERTENSION
     Dosage: TAKEN BY MOUTH, 1 PILLULE
     Dates: start: 20140530, end: 20140531

REACTIONS (5)
  - Pharyngeal oedema [None]
  - Swollen tongue [None]
  - Coma [None]
  - Scar [None]
  - Throat tightness [None]

NARRATIVE: CASE EVENT DATE: 20140531
